FAERS Safety Report 16570173 (Version 2)
Quarter: 2019Q3

REPORT INFORMATION
  Report Type: Report from Study
  Country: None (occurrence: IT)
  Receive Date: 20190715
  Receipt Date: 20190729
  Transmission Date: 20191004
  Serious: Yes (Hospitalization, Other)
  Sender: FDA-Public Use
  Company Number: IT-ABBVIE-19K-083-2851443-00

PATIENT
  Age: 77 Year
  Sex: Male

DRUGS (1)
  1. DUODOPA [Suspect]
     Active Substance: CARBIDOPA\LEVODOPA
     Indication: PARKINSON^S DISEASE
     Dosage: MD 8,8(+3)??CR 4,5??ED 4
     Route: 050
     Dates: start: 20150427

REACTIONS (2)
  - Bezoar [Unknown]
  - Medical device site ulcer [Recovered/Resolved]

NARRATIVE: CASE EVENT DATE: 201906
